FAERS Safety Report 7829118-8 (Version None)
Quarter: 2011Q4

REPORT INFORMATION
  Report Type: 
  Country: None (occurrence: None)
  Receive Date: 20111020
  Receipt Date: 20111010
  Transmission Date: 20120403
  Serious: Yes (Other)
  Sender: FDA-Public Use
  Company Number: PHHY2011JP90811

PATIENT
  Age: 69 Year
  Sex: Male

DRUGS (2)
  1. CYCLOSPORINE [Suspect]
     Dosage: 50 MG / DAY
  2. CYCLOSPORINE [Suspect]
     Indication: APLASIA PURE RED CELL
     Dosage: 300 MG / DAY

REACTIONS (3)
  - OEDEMA [None]
  - RENAL IMPAIRMENT [None]
  - BONE MARROW FAILURE [None]
